FAERS Safety Report 6750562-4 (Version None)
Quarter: 2010Q2

REPORT INFORMATION
  Report Type: 
  Country: None (occurrence: None)
  Receive Date: 20100528
  Receipt Date: 20100528
  Transmission Date: 20101027
  Serious: Yes (Other)
  Sender: FDA-Public Use
  Company Number: None

PATIENT
  Age: 39 Year
  Sex: Female
  Weight: 53.5244 kg

DRUGS (1)
  1. RISPERDAL [Suspect]
     Indication: MENTAL DISORDER

REACTIONS (6)
  - ADVERSE DRUG REACTION [None]
  - DRUG TOXICITY [None]
  - EYE DISORDER [None]
  - PRODUCT SUBSTITUTION ISSUE [None]
  - SOMNOLENCE [None]
  - THINKING ABNORMAL [None]
